FAERS Safety Report 9124622 (Version 2)
Quarter: 2013Q2

REPORT INFORMATION
  Report Type: Spontaneous
  Country: NZ (occurrence: NZ)
  Receive Date: 20130227
  Receipt Date: 20130417
  Transmission Date: 20140414
  Serious: Yes (Hospitalization, Other)
  Sender: FDA-Public Use
  Company Number: NZ-PFIZER INC-2013067066

PATIENT
  Age: 41 Year
  Sex: Female
  Weight: 90 kg

DRUGS (3)
  1. CHAMPIX [Suspect]
     Indication: SMOKING CESSATION THERAPY
     Dosage: 1 MG, 1X/DAY
     Route: 048
     Dates: start: 20121214, end: 201212
  2. CHAMPIX [Suspect]
     Dosage: 1 MG, 2X/DAY
     Route: 048
     Dates: start: 201212, end: 20121224
  3. SALBUTAMOL [Concomitant]
     Indication: ASTHMA
     Dosage: 100 UG, AS NEEDED
     Route: 055

REACTIONS (8)
  - Haematemesis [Recovered/Resolved]
  - Petechiae [Recovered/Resolved]
  - Headache [Recovered/Resolved]
  - Jaundice [Unknown]
  - Pyrexia [Unknown]
  - Abdominal pain [Unknown]
  - Eczema [Recovered/Resolved]
  - Poor quality sleep [Recovered/Resolved]
